FAERS Safety Report 14854483 (Version 3)
Quarter: 2018Q3

REPORT INFORMATION
  Report Type: Spontaneous
  Country: CN (occurrence: CN)
  Receive Date: 20180507
  Receipt Date: 20180702
  Transmission Date: 20181010
  Serious: Yes (Life-Threatening, Hospitalization, Other)
  Sender: FDA-Public Use
  Company Number: CN-PFIZER INC-2018184795

PATIENT
  Age: 32 Year
  Sex: Female
  Weight: 47 kg

DRUGS (9)
  1. CISATRACURIUM. [Suspect]
     Active Substance: CISATRACURIUM
     Indication: GENERAL ANAESTHESIA
     Dosage: 1.5 MG/KG, UNK
  2. REMIFENTANIL [Suspect]
     Active Substance: REMIFENTANIL
     Indication: GENERAL ANAESTHESIA
     Dosage: UNK, 0.1 TO 0.2 UG/KG/MIN
  3. PROPOFOL. [Suspect]
     Active Substance: PROPOFOL
     Indication: GENERAL ANAESTHESIA
     Dosage: 1.5 MG/KG, UNK
  4. LUMINAL [Concomitant]
     Active Substance: PHENOBARBITAL SODIUM
     Indication: PREMEDICATION
     Dosage: 0.1 G, UNK
     Route: 030
  5. DEXMEDETOMIDINE HYDROCHLORIDE. [Suspect]
     Active Substance: DEXMEDETOMIDINE HYDROCHLORIDE
     Indication: GENERAL ANAESTHESIA
     Dosage: 1 UG/KG, UNK
  6. PROPRANOLOL HYDROCHLORIDE. [Concomitant]
     Active Substance: PROPRANOLOL HYDROCHLORIDE
     Dosage: UNK
  7. SEVOFLURANE. [Suspect]
     Active Substance: SEVOFLURANE
     Indication: GENERAL ANAESTHESIA
     Dosage: UNK, 1.5% TO 3%
  8. PROPYLTHIOURACIL. [Concomitant]
     Active Substance: PROPYLTHIOURACIL
     Dosage: 200 MG, UNK
  9. SUFENTANIL [Suspect]
     Active Substance: SUFENTANIL
     Indication: GENERAL ANAESTHESIA
     Dosage: 0.5 UG/KG, UNK

REACTIONS (2)
  - Sinus tachycardia [Recovering/Resolving]
  - Thyrotoxic crisis [Recovering/Resolving]
